FAERS Safety Report 9292517 (Version 1)
Quarter: 2013Q1

REPORT INFORMATION
  Report Type: Spontaneous
  Country: US (occurrence: None)
  Receive Date: 20121212
  Receipt Date: 20121212
  Transmission Date: 20140127
  Serious: No
  Sender: FDA-Public Use
  Company Number: 1210USA008820

PATIENT
  Sex: 0

DRUGS (3)
  1. VICTRELIS [Suspect]
  2. PEGINTERFERON ALFA-2B [Suspect]
  3. RIBAVIRIN [Suspect]

REACTIONS (2)
  - Cough [None]
  - Eructation [None]
